FAERS Safety Report 18010371 (Version 8)
Quarter: 2021Q1

REPORT INFORMATION
  Report Type: Report from Study
  Country: US (occurrence: US)
  Receive Date: 20200710
  Receipt Date: 20210106
  Transmission Date: 20210419
  Serious: Yes (Other)
  Sender: FDA-Public Use
  Company Number: NVSC2020US192240

PATIENT
  Age: 56 Year
  Sex: Female

DRUGS (6)
  1. ENTRESTO [Suspect]
     Active Substance: SACUBITRIL\VALSARTAN
     Indication: PRODUCT USED FOR UNKNOWN INDICATION
     Dosage: 1 DF, BID
     Route: 048
  2. ENTRESTO [Suspect]
     Active Substance: SACUBITRIL\VALSARTAN
     Dosage: UNK UNK, BID (2 TABS IN AM AND PM UNTIL HAS 49/51MG TABS THEN 1 IN AM AND PM)
     Route: 048
  3. LASIX [Suspect]
     Active Substance: FUROSEMIDE
     Dosage: 20 MG
     Route: 065
  4. ENTRESTO [Suspect]
     Active Substance: SACUBITRIL\VALSARTAN
     Dosage: 100 MG, BID (49/51 MG)
     Route: 048
  5. LASIX [Suspect]
     Active Substance: FUROSEMIDE
     Indication: PRODUCT USED FOR UNKNOWN INDICATION
     Dosage: UNK UNK, PRN
     Route: 065
  6. LASIX [Suspect]
     Active Substance: FUROSEMIDE
     Dosage: UNK UNK, QD
     Route: 065
     Dates: start: 202008

REACTIONS (11)
  - Muscle spasms [Not Recovered/Not Resolved]
  - Renal impairment [Not Recovered/Not Resolved]
  - Weight increased [Unknown]
  - Coronavirus infection [Unknown]
  - Dizziness [Not Recovered/Not Resolved]
  - Pollakiuria [Unknown]
  - Blood pressure abnormal [Unknown]
  - Dyspnoea [Recovering/Resolving]
  - Fluid retention [Unknown]
  - Fatigue [Not Recovered/Not Resolved]
  - Micturition disorder [Unknown]

NARRATIVE: CASE EVENT DATE: 2020
